FAERS Safety Report 14056918 (Version 1)
Quarter: 2017Q4

REPORT INFORMATION
  Report Type: Spontaneous
  Country: GB (occurrence: GB)
  Receive Date: 20171006
  Receipt Date: 20171006
  Transmission Date: 20180321
  Serious: Yes (Other)
  Sender: FDA-Public Use
  Company Number: GB-TEVA-811613ACC

PATIENT
  Age: 25 Year
  Sex: Female
  Weight: 134 kg

DRUGS (12)
  1. BRALTUS [Concomitant]
  2. RELVAR ELLIPTA [Concomitant]
     Active Substance: FLUTICASONE FUROATE\VILANTEROL TRIFENATATE
  3. MONTELUKAST [Concomitant]
     Active Substance: MONTELUKAST SODIUM
  4. OMEPRAZOLE. [Concomitant]
     Active Substance: OMEPRAZOLE
  5. PREGABALIN. [Concomitant]
     Active Substance: PREGABALIN
  6. OXYCODONE [Concomitant]
     Active Substance: OXYCODONE
  7. SERTRALINE [Concomitant]
     Active Substance: SERTRALINE HYDROCHLORIDE
  8. TEVA UK LAMOTRIGINE [Suspect]
     Active Substance: LAMOTRIGINE
     Indication: EPILEPSY
     Dosage: 200MG AM, 250MG PM
     Route: 048
     Dates: start: 20140201
  9. NORIDAY [Concomitant]
     Active Substance: FERROUS FUMARATE\MESTRANOL\NORETHINDRONE
  10. MEBEVERINE [Concomitant]
     Active Substance: MEBEVERINE
  11. SALAMOL [Concomitant]
     Active Substance: ALBUTEROL
  12. MATRIFEN [Concomitant]
     Active Substance: FENTANYL

REACTIONS (5)
  - Gingival pain [Not Recovered/Not Resolved]
  - Sensitivity of teeth [Not Recovered/Not Resolved]
  - Gingival recession [Not Recovered/Not Resolved]
  - Dental caries [Not Recovered/Not Resolved]
  - Gingival bleeding [Not Recovered/Not Resolved]

NARRATIVE: CASE EVENT DATE: 20150201
